FAERS Safety Report 24649575 (Version 1)
Quarter: 2024Q4

REPORT INFORMATION
  Report Type: Spontaneous
  Country: IR (occurrence: IR)
  Receive Date: 20241121
  Receipt Date: 20241121
  Transmission Date: 20250115
  Serious: Yes (Death)
  Sender: PRINSTON PHARMACEUTICAL
  Company Number: IR-PRINSTON PHARMACEUTICAL INC.-2024PRN00424

PATIENT
  Sex: Male

DRUGS (1)
  1. CAPTOPRIL [Suspect]
     Active Substance: CAPTOPRIL
     Dosage: 6.25 MG, 3X/DAY

REACTIONS (1)
  - Death [Fatal]
